FAERS Safety Report 8073172-8 (Version None)
Quarter: 2012Q1

REPORT INFORMATION
  Report Type: 
  Country: None (occurrence: None)
  Receive Date: 20120126
  Receipt Date: 20120116
  Transmission Date: 20120608
  Serious: Yes (Hospitalization)
  Sender: FDA-Public Use
  Company Number: DE-ELI_LILLY_AND_COMPANY-DE201201004324

PATIENT
  Age: 79 Year
  Sex: Male

DRUGS (3)
  1. CALCIUM [Concomitant]
  2. FORTEO [Suspect]
     Indication: DIABETES MELLITUS
     Dosage: UNK
     Route: 058
     Dates: start: 20101019
  3. VITAMIN D [Concomitant]

REACTIONS (3)
  - DIZZINESS [None]
  - FALL [None]
  - OFF LABEL USE [None]
